FAERS Safety Report 16024408 (Version 1)
Quarter: 2019Q1

REPORT INFORMATION
  Report Type: Spontaneous
  Country: AT (occurrence: AT)
  Receive Date: 20190301
  Receipt Date: 20190301
  Transmission Date: 20190418
  Serious: Yes (Other)
  Sender: FDA-Public Use
  Company Number: AT-UCBSA-2019008912

PATIENT
  Age: 31 Year
  Sex: Female

DRUGS (2)
  1. LEVETIRACETAM UCB [Suspect]
     Active Substance: LEVETIRACETAM
     Indication: FOCAL DYSCOGNITIVE SEIZURES
     Dosage: 500 MG, 2X/DAY (BID)
  2. VIMPAT [Suspect]
     Active Substance: LACOSAMIDE
     Indication: FOCAL DYSCOGNITIVE SEIZURES
     Dosage: 200 MG, 2X/DAY (BID)

REACTIONS (3)
  - Mental disorder [Unknown]
  - Psychiatric symptom [Unknown]
  - Headache [Unknown]
